FAERS Safety Report 8707377 (Version 2)
Quarter: 2012Q4

REPORT INFORMATION
  Report Type: 
  Country: US (occurrence: US)
  Receive Date: 20120803
  Receipt Date: 20120913
  Transmission Date: 20130627
  Serious: Yes (Hospitalization, Disabling, Other)
  Sender: FDA-Public Use
  Company Number: US-ASTRAZENECA-2012SE52586

PATIENT
  Age: 55 Year
  Sex: Female
  Weight: 94.3 kg

DRUGS (43)
  1. NEXIUM [Suspect]
     Indication: GASTROOESOPHAGEAL REFLUX DISEASE
     Route: 048
     Dates: start: 1995, end: 1996
  2. NEXIUM [Suspect]
     Indication: GASTROOESOPHAGEAL REFLUX DISEASE
     Route: 048
     Dates: start: 2010, end: 2011
  3. OMEPRAZOLE [Suspect]
     Indication: GASTROOESOPHAGEAL REFLUX DISEASE
     Route: 048
     Dates: start: 20080711
  4. OMEPRAZOLE [Suspect]
     Indication: GASTROOESOPHAGEAL REFLUX DISEASE
     Route: 048
     Dates: start: 20080711
  5. OMEPRAZOLE [Suspect]
     Indication: PAIN
     Route: 048
     Dates: start: 20080711
  6. OMEPRAZOLE [Suspect]
     Indication: GASTROOESOPHAGEAL REFLUX DISEASE
     Route: 048
     Dates: start: 200806
  7. OMEPRAZOLE [Suspect]
     Indication: GASTROOESOPHAGEAL REFLUX DISEASE
     Route: 048
     Dates: start: 200806
  8. OMEPRAZOLE [Suspect]
     Indication: PAIN
     Route: 048
     Dates: start: 200806
  9. OMEPRAZOLE [Suspect]
     Indication: GASTROOESOPHAGEAL REFLUX DISEASE
     Route: 048
     Dates: start: 200807
  10. OMEPRAZOLE [Suspect]
     Indication: GASTROOESOPHAGEAL REFLUX DISEASE
     Route: 048
     Dates: start: 200807
  11. OMEPRAZOLE [Suspect]
     Indication: PAIN
     Route: 048
     Dates: start: 200807
  12. OMEPRAZOLE [Suspect]
     Indication: GASTROOESOPHAGEAL REFLUX DISEASE
     Route: 048
     Dates: start: 201102
  13. OMEPRAZOLE [Suspect]
     Indication: GASTROOESOPHAGEAL REFLUX DISEASE
     Route: 048
     Dates: start: 201102
  14. OMEPRAZOLE [Suspect]
     Indication: PAIN
     Route: 048
     Dates: start: 201102
  15. OMEPRAZOLE [Suspect]
     Indication: GASTROOESOPHAGEAL REFLUX DISEASE
     Route: 048
     Dates: start: 201204
  16. OMEPRAZOLE [Suspect]
     Indication: GASTROOESOPHAGEAL REFLUX DISEASE
     Route: 048
     Dates: start: 201204
  17. OMEPRAZOLE [Suspect]
     Indication: PAIN
     Route: 048
     Dates: start: 201204
  18. OMEPRAZOLE [Suspect]
     Indication: GASTROOESOPHAGEAL REFLUX DISEASE
     Route: 048
     Dates: start: 201204
  19. OMEPRAZOLE [Suspect]
     Indication: GASTROOESOPHAGEAL REFLUX DISEASE
     Route: 048
     Dates: start: 201204
  20. OMEPRAZOLE [Suspect]
     Indication: PAIN
     Route: 048
     Dates: start: 201204
  21. OMEPRAZOLE [Suspect]
     Indication: GASTROOESOPHAGEAL REFLUX DISEASE
     Route: 048
     Dates: start: 201208
  22. OMEPRAZOLE [Suspect]
     Indication: GASTROOESOPHAGEAL REFLUX DISEASE
     Route: 048
     Dates: start: 201208
  23. OMEPRAZOLE [Suspect]
     Indication: PAIN
     Route: 048
     Dates: start: 201208
  24. LEVOTHYROXINE [Concomitant]
     Indication: HYPOTHYROIDISM
     Route: 048
     Dates: start: 1993
  25. FLONASE [Concomitant]
     Indication: HYPERSENSITIVITY
  26. QVAR [Concomitant]
     Indication: ASTHMA
     Route: 055
  27. LOVASTATIN [Concomitant]
     Indication: BLOOD CHOLESTEROL ABNORMAL
     Dates: start: 1992
  28. LISINOPRIL [Concomitant]
     Indication: HYPERTENSION
     Dates: start: 1992
  29. ZYRTEC OTC [Concomitant]
     Indication: MULTIPLE ALLERGIES
  30. BENADRYL [Concomitant]
     Indication: MULTIPLE ALLERGIES
  31. ALBUTEROL SULPHATE [Concomitant]
     Indication: ASTHMA
  32. HORMONES [Concomitant]
  33. PROKAR DX [Concomitant]
     Indication: GASTROOESOPHAGEAL REFLUX DISEASE
     Route: 048
     Dates: start: 20080726, end: 20100618
  34. RANITIDINE [Concomitant]
  35. TOPAMAX [Concomitant]
  36. NITROQUICK [Concomitant]
  37. GAS RELIEF [Concomitant]
  38. GINKGO [Concomitant]
  39. FISH OIL [Concomitant]
  40. SENOKOT [Concomitant]
  41. OSTEOBIFLEX [Concomitant]
  42. PROTONIX [Concomitant]
  43. REGLAN [Concomitant]

REACTIONS (42)
  - Dyspnoea [Unknown]
  - Chest pain [Unknown]
  - Oesophagitis [Unknown]
  - Haematemesis [Unknown]
  - Drug ineffective [Unknown]
  - Gastrooesophageal reflux disease [Unknown]
  - Oropharyngeal pain [Unknown]
  - Hiatus hernia [Unknown]
  - Dysphagia [Unknown]
  - Precancerous mucosal lesion [Unknown]
  - Dyspnoea [Unknown]
  - Asthma [Unknown]
  - Ear pain [Unknown]
  - Multiple allergies [Unknown]
  - Enamel anomaly [Unknown]
  - Sinus congestion [Unknown]
  - Barrett^s oesophagus [Unknown]
  - Blood cholesterol increased [Unknown]
  - Dysphonia [Unknown]
  - Vomiting [Unknown]
  - Irritable bowel syndrome [Unknown]
  - Glossodynia [Unknown]
  - Weight decreased [Unknown]
  - Aphagia [Unknown]
  - Anxiety [Unknown]
  - Gastritis [Unknown]
  - Migraine [Unknown]
  - Bronchitis [Unknown]
  - Sleep disorder [Unknown]
  - Fatigue [Unknown]
  - Nasal discomfort [Unknown]
  - Weight increased [Unknown]
  - Abdominal pain [Unknown]
  - Nausea [Unknown]
  - Gingival disorder [Unknown]
  - Constipation [Unknown]
  - Diarrhoea [Unknown]
  - Abdominal discomfort [Unknown]
  - Arthralgia [Unknown]
  - Abdominal pain upper [Unknown]
  - Off label use [Unknown]
  - Intentional drug misuse [Unknown]
